FAERS Safety Report 25096606 (Version 2)
Quarter: 2025Q1

REPORT INFORMATION
  Report Type: Report from Study
  Country: US (occurrence: US)
  Receive Date: 20250319
  Receipt Date: 20250325
  Transmission Date: 20250408
  Serious: Yes (Other)
  Sender: JOHNSON AND JOHNSON
  Company Number: US-JNJFOC-20250303906

PATIENT
  Age: 63 Year
  Sex: Male

DRUGS (5)
  1. OPSUMIT [Suspect]
     Active Substance: MACITENTAN
     Indication: Product used for unknown indication
     Route: 065
  2. ASPIRIN [Concomitant]
     Active Substance: ASPIRIN
  3. ATORVASTATIN [Concomitant]
     Active Substance: ATORVASTATIN
  4. FUROSEMIDE [Concomitant]
     Active Substance: FUROSEMIDE
  5. TADALAFIL [Concomitant]
     Active Substance: TADALAFIL

REACTIONS (5)
  - Cardiac failure [Unknown]
  - Product dose omission issue [Unknown]
  - Headache [Unknown]
  - Eye disorder [Unknown]
  - Dizziness [Unknown]
